FAERS Safety Report 19023169 (Version 2)
Quarter: 2021Q2

REPORT INFORMATION
  Report Type: Spontaneous
  Country: US (occurrence: US)
  Receive Date: 20210318
  Receipt Date: 20210426
  Transmission Date: 20210717
  Serious: No
  Sender: FDA-Public Use
  Company Number: US-BAUSCH-BL-2021-008840

PATIENT
  Age: 67 Year
  Sex: Male

DRUGS (3)
  1. PROLENSA [Suspect]
     Active Substance: BROMFENAC SODIUM
     Indication: PREOPERATIVE CARE
     Route: 047
     Dates: start: 20210228
  2. PREDNISOLONE. [Suspect]
     Active Substance: PREDNISOLONE
     Indication: PREOPERATIVE CARE
     Route: 047
     Dates: start: 20210228
  3. OFLOXACIN OPHTHALMIC [Suspect]
     Active Substance: OFLOXACIN
     Indication: PREOPERATIVE CARE
     Route: 047
     Dates: start: 20210228

REACTIONS (2)
  - Dyschromatopsia [Unknown]
  - Visual impairment [Unknown]

NARRATIVE: CASE EVENT DATE: 2021
